FAERS Safety Report 6287456-7 (Version None)
Quarter: 2009Q3

REPORT INFORMATION
  Report Type: 
  Country: None (occurrence: None)
  Receive Date: 20090728
  Receipt Date: 20090716
  Transmission Date: 20100115
  Serious: Yes (Other)
  Sender: FDA-Public Use
  Company Number: GB-GILEAD-2009-0023161

PATIENT
  Sex: Male
  Weight: 93 kg

DRUGS (8)
  1. TRUVADA [Suspect]
     Indication: HIV INFECTION
     Route: 048
     Dates: start: 20071129
  2. REYATAZ [Suspect]
     Route: 048
     Dates: start: 20071129
  3. RITONAVIR [Suspect]
     Route: 048
     Dates: start: 20071129
  4. AMYTRIPTYLINE [Concomitant]
     Route: 048
  5. GABAPENTIN [Concomitant]
     Route: 048
  6. INSULIN [Concomitant]
     Route: 058
  7. OMEPRAZOLE [Concomitant]
     Route: 048
  8. TRAMADOL HCL [Concomitant]

REACTIONS (1)
  - NEPHROLITHIASIS [None]
